FAERS Safety Report 16742641 (Version 5)
Quarter: 2019Q4

REPORT INFORMATION
  Report Type: Spontaneous
  Country: JP (occurrence: JP)
  Receive Date: 20190826
  Receipt Date: 20191206
  Transmission Date: 20200122
  Serious: Yes (Hospitalization, Other)
  Sender: FDA-Public Use
  Company Number: PHJP2019JP010687

PATIENT
  Age: 49 Year
  Sex: Male

DRUGS (9)
  1. THEOPHYLLINE [Suspect]
     Active Substance: THEOPHYLLINE ANHYDROUS
     Indication: ASTHMA
     Dosage: 200 MG, QD
     Route: 048
     Dates: start: 20170106, end: 20190515
  2. URIADEC [Concomitant]
     Active Substance: TOPIROXOSTAT
     Indication: HYPERURICAEMIA
     Dosage: 1 DF, BID
     Route: 048
     Dates: start: 20190227
  3. MONTELUKAST [Suspect]
     Active Substance: MONTELUKAST SODIUM
     Indication: ASTHMA
     Dosage: 1 DF, QD
     Route: 048
     Dates: start: 20170106, end: 20190515
  4. ONETRAM [Suspect]
     Active Substance: TRAMADOL HYDROCHLORIDE
     Indication: PAIN IN EXTREMITY
     Dosage: 2 DF, QD
     Route: 048
     Dates: start: 20170106, end: 20190515
  5. PEMAFIBRATE [Concomitant]
     Active Substance: PEMAFIBRATE
     Indication: HYPERLIPIDAEMIA
     Dosage: 1 DF, BID
     Route: 048
     Dates: start: 20180606
  6. DEBERZA [Suspect]
     Active Substance: TOFOGLIFLOZIN
     Indication: TYPE 2 DIABETES MELLITUS
     Dosage: 1 DF, QD
     Route: 048
     Dates: start: 20170106, end: 20190515
  7. ZETIA [Concomitant]
     Active Substance: EZETIMIBE
     Indication: HYPERLIPIDAEMIA
     Dosage: 1 DF, QD
     Route: 048
     Dates: start: 20170106
  8. SHOSEIRYUTO [Suspect]
     Active Substance: EPHEDRA SINICA STEM\HERBALS
     Indication: ASTHMA
     Dosage: 3 G, BID
     Route: 048
     Dates: start: 20171115, end: 20190515
  9. EQUMET [Suspect]
     Active Substance: METFORMIN HYDROCHLORIDE\VILDAGLIPTIN
     Indication: TYPE 2 DIABETES MELLITUS
     Dosage: 1 DF, UNK (METFORMIN 500 MG, VILDAGLIPTIN 50 MG)
     Route: 048
     Dates: start: 20170106, end: 20190515

REACTIONS (21)
  - Type 2 diabetes mellitus [Unknown]
  - Insulin resistance [Unknown]
  - Disease progression [Unknown]
  - Hyperlipidaemia [Recovering/Resolving]
  - Obesity [Unknown]
  - Hepatic steatosis [Unknown]
  - Exercise tolerance decreased [Unknown]
  - Abdominal distension [Unknown]
  - Dyspepsia [Unknown]
  - Pancreatic enlargement [Unknown]
  - Concomitant disease aggravated [Recovering/Resolving]
  - Benign prostatic hyperplasia [Unknown]
  - Concomitant disease progression [Unknown]
  - Hyperphagia [Unknown]
  - Pancreatitis acute [Recovering/Resolving]
  - Abdominal pain upper [Unknown]
  - Hepatic function abnormal [Recovered/Resolved]
  - Diabetes mellitus inadequate control [Recovering/Resolving]
  - Glycosylated haemoglobin increased [Unknown]
  - Weight increased [Unknown]
  - Hyperglycaemia [Unknown]

NARRATIVE: CASE EVENT DATE: 20170106
